FAERS Safety Report 24984825 (Version 2)
Quarter: 2025Q3

REPORT INFORMATION
  Report Type: Report from Study
  Country: CA (occurrence: CA)
  Receive Date: 20250219
  Receipt Date: 20250803
  Transmission Date: 20251021
  Serious: Yes (Other)
  Sender: ALEXION PHARMACEUTICALS
  Company Number: CA-AstraZeneca-2024A075876

PATIENT
  Sex: Female

DRUGS (2)
  1. OLAPARIB [Suspect]
     Active Substance: OLAPARIB
     Indication: Ovarian cancer
     Dosage: 300 MILLIGRAM, BID
     Dates: start: 20230918
  2. OLAPARIB [Suspect]
     Active Substance: OLAPARIB
     Dosage: 300 MILLIGRAM, BID
     Dates: start: 20231002

REACTIONS (11)
  - Metastasis [Unknown]
  - Ovarian cancer recurrent [Unknown]
  - Weight decreased [Unknown]
  - Nausea [Unknown]
  - Blood test abnormal [Unknown]
  - Asthenia [Unknown]
  - Product use issue [Unknown]
  - Polyarthritis [Unknown]
  - Myelodysplastic syndrome with single lineage dysplasia [Unknown]
  - Drug intolerance [Unknown]
  - Gene mutation [Unknown]
